FAERS Safety Report 7521652-3 (Version None)
Quarter: 2011Q2

REPORT INFORMATION
  Report Type: 
  Country: None (occurrence: None)
  Receive Date: 20110524
  Receipt Date: 20110509
  Transmission Date: 20111010
  Serious: Yes (Other)
  Sender: FDA-Public Use
  Company Number: 2011-204

PATIENT
  Age: 62 Year
  Sex: Female

DRUGS (2)
  1. PRIALT [Suspect]
     Indication: BONE PAIN
     Dosage: 0.18 UG/HR INTRATHECAL
     Route: 037
  2. MORPHINE SULFATE [Suspect]
     Indication: BONE PAIN
     Dosage: 0.81 MG/HR INTRATHECAL
     Route: 037

REACTIONS (4)
  - DRUG INEFFECTIVE [None]
  - TENSION HEADACHE [None]
  - HYPOAESTHESIA [None]
  - DYSAESTHESIA [None]
